FAERS Safety Report 5933316-8 (Version None)
Quarter: 2008Q4

REPORT INFORMATION
  Report Type: 
  Country: None (occurrence: None)
  Receive Date: 20081028
  Receipt Date: 20081020
  Transmission Date: 20090506
  Serious: Yes (Other)
  Sender: FDA-Public Use
  Company Number: JP-ABBOTT-08P-087-0483409-00

PATIENT
  Age: 32 Year
  Sex: Female

DRUGS (4)
  1. RITONAVIR SOFT GELATIN CAPSULES [Suspect]
     Indication: HIV INFECTION
     Route: 048
     Dates: start: 20060109
  2. TENOFOVIR DISOPROXIL FUMARATE [Concomitant]
     Indication: HIV INFECTION
     Route: 048
     Dates: start: 20060120, end: 20070617
  3. LAMIVUDINE [Concomitant]
     Indication: HIV INFECTION
     Dates: start: 20060109, end: 20070617
  4. ATAZANAVIR SULFATE [Concomitant]
     Indication: HIV INFECTION
     Dates: start: 20060109

REACTIONS (1)
  - ABORTION INDUCED [None]
